FAERS Safety Report 4930656-6 (Version None)
Quarter: 2006Q1

REPORT INFORMATION
  Report Type: 
  Country: None (occurrence: None)
  Receive Date: 20060302
  Receipt Date: 20060222
  Transmission Date: 20060701
  Serious: Yes (Hospitalization)
  Sender: FDA-Public Use
  Company Number: 2006CG00384

PATIENT
  Age: 77 Year
  Sex: Male
  Weight: 65 kg

DRUGS (10)
  1. OMEPRAZOLE [Suspect]
     Route: 048
     Dates: end: 20051118
  2. ZOCOR [Suspect]
     Route: 048
     Dates: end: 20051118
  3. NEURONTIN [Suspect]
     Indication: CONVULSION
     Route: 048
     Dates: start: 20051110, end: 20051121
  4. EXELON [Suspect]
     Route: 048
     Dates: end: 20051118
  5. ASPEGIC [Suspect]
     Route: 048
     Dates: end: 20051118
  6. MEDROL [Suspect]
     Indication: CONVULSION
     Route: 048
     Dates: start: 20051110, end: 20051119
  7. MEDROL [Suspect]
     Route: 048
     Dates: start: 20051120, end: 20051127
  8. UN-ALFA [Suspect]
     Route: 048
  9. ADANCOR [Concomitant]
  10. LEVOTHYROX [Concomitant]

REACTIONS (2)
  - ABNORMAL BEHAVIOUR [None]
  - SUBDURAL HAEMATOMA [None]
